APPROVED DRUG PRODUCT: BUTALBITAL AND ACETAMINOPHEN
Active Ingredient: ACETAMINOPHEN; BUTALBITAL
Strength: 300MG;50MG
Dosage Form/Route: CAPSULE;ORAL
Application: A207313 | Product #001 | TE Code: AA
Applicant: DR REDDYS LABORATORIES SA
Approved: Dec 27, 2017 | RLD: No | RS: Yes | Type: RX